FAERS Safety Report 15694750 (Version 5)
Quarter: 2019Q2

REPORT INFORMATION
  Report Type: Report from Study
  Country: US (occurrence: US)
  Receive Date: 20181206
  Receipt Date: 20190529
  Transmission Date: 20190711
  Serious: Yes (Death, Other)
  Sender: FDA-Public Use
  Company Number: US-UCBSA-2018052773

PATIENT
  Sex: Male
  Weight: 70 kg

DRUGS (2)
  1. EFFEXOR [Concomitant]
     Active Substance: VENLAFAXINE HYDROCHLORIDE
     Indication: PRODUCT USED FOR UNKNOWN INDICATION
     Dosage: UNK
  2. LACOSAMIDE. [Suspect]
     Active Substance: LACOSAMIDE
     Indication: SEIZURE
     Dosage: 100 MG, UNK

REACTIONS (6)
  - Cerebrovascular accident [Unknown]
  - Glioblastoma [Not Recovered/Not Resolved]
  - Hypersomnia [Unknown]
  - Death [Fatal]
  - Seizure [Unknown]
  - Product dose omission [Unknown]
